FAERS Safety Report 4303856-6 (Version None)
Quarter: 2004Q1

REPORT INFORMATION
  Report Type: 
  Country: None (occurrence: None)
  Receive Date: 20040225
  Receipt Date: 20040211
  Transmission Date: 20041129
  Serious: Yes (Life-Threatening, Hospitalization, Other)
  Sender: FDA-Public Use
  Company Number: US-GLAXOSMITHKLINE-A0498324A

PATIENT
  Sex: Female
  Weight: 72.3 kg

DRUGS (6)
  1. AVANDAMET [Suspect]
     Route: 048
     Dates: start: 20040130, end: 20040207
  2. SYNTHROID [Concomitant]
     Indication: HYPOTHYROIDISM
     Dosage: 1TAB PER DAY
  3. SINGULAIR [Concomitant]
     Indication: ASTHMA
     Dosage: 1TAB AT NIGHT
  4. MOBIC [Concomitant]
     Indication: ARTHRITIS
     Dosage: 1TAB PER DAY
  5. ACIPHEX [Concomitant]
     Dosage: 1TAB PER DAY
  6. PROZAC [Concomitant]
     Indication: DEPRESSION
     Dosage: 1CAP WEEKLY

REACTIONS (2)
  - ACIDOSIS [None]
  - HYPERGLYCAEMIA [None]
